FAERS Safety Report 14354747 (Version 5)
Quarter: 2018Q1

REPORT INFORMATION
  Report Type: Report from Study
  Country: US (occurrence: US)
  Receive Date: 20180105
  Receipt Date: 20180305
  Transmission Date: 20180509
  Serious: Yes (Hospitalization, Other)
  Sender: FDA-Public Use
  Company Number: US-GILEAD-2018-0314012

PATIENT
  Age: 75 Year
  Sex: Female
  Weight: 81 kg

DRUGS (21)
  1. FOSAMAX [Concomitant]
     Active Substance: ALENDRONATE SODIUM
  2. RESTORIL [Concomitant]
     Active Substance: TEMAZEPAM
  3. OXYGEN. [Concomitant]
     Active Substance: OXYGEN
  4. REVATIO [Concomitant]
     Active Substance: SILDENAFIL CITRATE
  5. KLOR-CON M20 [Concomitant]
     Active Substance: POTASSIUM CHLORIDE
  6. TL FOL 500 [Concomitant]
  7. ZOLOFT [Concomitant]
     Active Substance: SERTRALINE HYDROCHLORIDE
  8. LISINOPRIL. [Concomitant]
     Active Substance: LISINOPRIL
  9. ASPIRIN                            /00002701/ [Concomitant]
     Active Substance: ASPIRIN
  10. SILDENAFIL CITRATE. [Concomitant]
     Active Substance: SILDENAFIL CITRATE
  11. AMBRISENTAN [Suspect]
     Active Substance: AMBRISENTAN
     Indication: PULMONARY ARTERIAL HYPERTENSION
     Dosage: 10 MG, QD
     Route: 048
     Dates: start: 20130206
  12. ADVAIR HFA [Concomitant]
     Active Substance: FLUTICASONE PROPIONATE\SALMETEROL XINAFOATE
  13. WARFARIN [Concomitant]
     Active Substance: WARFARIN
  14. NORCO [Concomitant]
     Active Substance: ACETAMINOPHEN\HYDROCODONE BITARTRATE
  15. NEURONTIN [Concomitant]
     Active Substance: GABAPENTIN
  16. SIMVASTATIN. [Concomitant]
     Active Substance: SIMVASTATIN
  17. CALCIUM +D                         /00944201/ [Concomitant]
     Active Substance: CALCIUM CARBONATE\CHOLECALCIFEROL
  18. DITROPAN [Concomitant]
     Active Substance: OXYBUTYNIN CHLORIDE
  19. ZANTAC [Concomitant]
     Active Substance: RANITIDINE HYDROCHLORIDE
  20. ELOCON [Concomitant]
     Active Substance: MOMETASONE FUROATE
  21. VENTOLIN HFA [Concomitant]
     Active Substance: ALBUTEROL SULFATE

REACTIONS (3)
  - Gastrointestinal haemorrhage [Unknown]
  - Cellulitis [Unknown]
  - Gait disturbance [Unknown]

NARRATIVE: CASE EVENT DATE: 20171227
